FAERS Safety Report 23643290 (Version 1)
Quarter: 2024Q1

REPORT INFORMATION
  Report Type: Spontaneous
  Country: TR (occurrence: TR)
  Receive Date: 20240318
  Receipt Date: 20240318
  Transmission Date: 20240410
  Serious: Yes (Hospitalization)
  Sender: FDA-Public Use
  Company Number: TR-MYLANLABS-2024M1024400

PATIENT
  Age: 62 Year
  Sex: Male

DRUGS (3)
  1. NITROGLYCERIN [Suspect]
     Active Substance: NITROGLYCERIN
     Indication: Angina pectoris
     Dosage: UNK, RECEIVED FULL COURSE
     Route: 022
  2. ADENOSINE [Suspect]
     Active Substance: ADENOSINE
     Indication: Angina pectoris
     Dosage: UNK, RECEIVED FULL COURSE
     Route: 065
  3. DILTIAZEM [Suspect]
     Active Substance: DILTIAZEM
     Indication: Angina pectoris
     Dosage: UNK, RECEIVED FULL COURSE
     Route: 065

REACTIONS (1)
  - Drug ineffective [Unknown]
